FAERS Safety Report 10423278 (Version 1)
Quarter: 2014Q3

REPORT INFORMATION
  Report Type: Spontaneous
  Country: US (occurrence: None)
  Receive Date: 20140722
  Receipt Date: 20140722
  Transmission Date: 20150326
  Serious: No
  Sender: FDA-Public Use
  Company Number: 163-10004-14061681

PATIENT
  Age: 55 Year
  Sex: Female

DRUGS (9)
  1. DICLOFENAC SODIUM. [Concomitant]
     Active Substance: DICLOFENAC SODIUM
  2. VITAMIN D (ERGOCALCIFEROL) [Concomitant]
     Active Substance: ERGOCALCIFEROL
  3. FISH OIL [Concomitant]
     Active Substance: FISH OIL
  4. RESTASIS (CICLOSPORIN) [Concomitant]
  5. OMEPRAZOLE. [Concomitant]
     Active Substance: OMEPRAZOLE
  6. OTEZLA [Suspect]
     Active Substance: APREMILAST
     Indication: PSORIATIC ARTHROPATHY
  7. PROGESTERONE. [Concomitant]
     Active Substance: PROGESTERONE
  8. METAXALONE. [Concomitant]
     Active Substance: METAXALONE
  9. MELATONEX [Concomitant]

REACTIONS (2)
  - Diarrhoea [None]
  - Headache [None]
